FAERS Safety Report 10374689 (Version 1)
Quarter: 2014Q1

REPORT INFORMATION
  Report Type: Spontaneous
  Country: US (occurrence: None)
  Receive Date: 20140306
  Receipt Date: 20140306
  Transmission Date: 20141002
  Serious: Yes (Disabling, Other)
  Sender: FDA-Public Use
  Company Number: 163-21880-13063420

PATIENT
  Age: 67 Year
  Sex: Female
  Weight: 61.2 kg

DRUGS (10)
  1. REVLIMID (LENALIDOMIDE) (15 MILLIGRAM, CAPSULES) [Suspect]
     Indication: PLASMA CELL MYELOMA
     Route: 048
     Dates: start: 200808
  2. DIOVAN (VALSARTAN) (UNKNOWN) [Concomitant]
  3. ZOLOFT (SERTRALINE HYDROCHLORIDE) (UNKNOWN) [Concomitant]
  4. DEXAMETHASONE (DEXAMETHASONE) (UNKNOWN) [Concomitant]
  5. SAMOLINIC (OTHER THERAPEUTIC PRODUCTS) (UNKNOWN) [Concomitant]
  6. ZINC (ZINC) (UNKNOWN) [Concomitant]
  7. VITAMIN B12 (CYANOCOBALAMIN) (UNKNOWN) [Concomitant]
  8. VALTREX (VALACICLOVIR HYDROCHLORIDE) (UNKNOWN) [Concomitant]
  9. CREON 20 (NORTASE) (UNKNOWN) [Concomitant]
  10. PENTASA (MESALAZINE) (UNKNOWN) [Concomitant]

REACTIONS (4)
  - Muscle spasms [None]
  - Blood magnesium decreased [None]
  - Diarrhoea [None]
  - Fatigue [None]
